FAERS Safety Report 15259546 (Version 1)
Quarter: 2018Q3

REPORT INFORMATION
  Report Type: Spontaneous
  Country: US (occurrence: US)
  Receive Date: 20180719
  Receipt Date: 20180719
  Transmission Date: 20181010
  Serious: Yes (Death, Other)
  Sender: FDA-Public Use
  Company Number: None

PATIENT
  Age: 80 Year
  Sex: Male
  Weight: 52.2 kg

DRUGS (22)
  1. CARTIA XT [Concomitant]
     Active Substance: DILTIAZEM HYDROCHLORIDE
  2. FINASTERIDE. [Concomitant]
     Active Substance: FINASTERIDE
  3. METOPROLOL. [Concomitant]
     Active Substance: METOPROLOL
  4. LEXAPRO [Concomitant]
     Active Substance: ESCITALOPRAM OXALATE
  5. BUMETANIDE. [Concomitant]
     Active Substance: BUMETANIDE
  6. ASPIRIN. [Concomitant]
     Active Substance: ASPIRIN
  7. ALFUZOSIN [Concomitant]
     Active Substance: ALFUZOSIN
  8. XANAX [Concomitant]
     Active Substance: ALPRAZOLAM
  9. BREO ELLIPTA [Concomitant]
     Active Substance: FLUTICASONE FUROATE\VILANTEROL TRIFENATATE
  10. TYLENOL [Concomitant]
     Active Substance: ACETAMINOPHEN
  11. COLACE [Concomitant]
     Active Substance: DOCUSATE SODIUM
  12. REVLIMID [Concomitant]
     Active Substance: LENALIDOMIDE
  13. VELCADE [Suspect]
     Active Substance: BORTEZOMIB
     Indication: PLASMA CELL MYELOMA
     Route: 058
     Dates: start: 20180629, end: 20180718
  14. DIGOX [Concomitant]
     Active Substance: DIGOXIN
  15. VITAMIN B12 [Concomitant]
     Active Substance: CYANOCOBALAMIN
  16. ALBUTEROL. [Concomitant]
     Active Substance: ALBUTEROL
  17. TUMS [Concomitant]
     Active Substance: CALCIUM CARBONATE
  18. NITROGLYCERIN. [Concomitant]
     Active Substance: NITROGLYCERIN
  19. BISACODYL. [Concomitant]
     Active Substance: BISACODYL
  20. MAGNESIUM [Concomitant]
     Active Substance: MAGNESIUM
  21. SIMVASTATIN. [Concomitant]
     Active Substance: SIMVASTATIN
  22. XARELTO [Concomitant]
     Active Substance: RIVAROXABAN

REACTIONS (1)
  - Disease progression [None]
